FAERS Safety Report 6532229-0 (Version None)
Quarter: 2010Q1

REPORT INFORMATION
  Report Type: 
  Country: None (occurrence: None)
  Receive Date: 20100108
  Receipt Date: 20091228
  Transmission Date: 20100710
  Serious: Yes (Hospitalization)
  Sender: FDA-Public Use
  Company Number: PHHY2009FR56778

PATIENT
  Sex: Male

DRUGS (2)
  1. RITALIN [Suspect]
     Indication: NARCOLEPSY
     Dosage: 10 MG, BID
     Dates: start: 20080615
  2. XYREM [Suspect]
     Indication: NARCOLEPSY
     Dosage: 4.5 MG, BID
     Dates: start: 20080615

REACTIONS (1)
  - HYPERKALAEMIA [None]
